FAERS Safety Report 20158541 (Version 1)
Quarter: 2021Q4

REPORT INFORMATION
  Report Type: Spontaneous
  Country: CN (occurrence: CN)
  Receive Date: 20211207
  Receipt Date: 20211207
  Transmission Date: 20220304
  Serious: Yes (Other)
  Sender: FDA-Public Use
  Company Number: CN-BAXTER-2021BAX038290

PATIENT
  Age: 54 Year
  Sex: Male
  Weight: 67 kg

DRUGS (4)
  1. MANNITOL [Suspect]
     Active Substance: MANNITOL
     Indication: Diuretic therapy
     Dosage: 50 GRAM/250 MILLILITER
     Route: 041
     Dates: start: 20211123, end: 20211123
  2. MANNITOL [Suspect]
     Active Substance: MANNITOL
     Indication: Swelling
  3. SODIUM CHLORIDE [Suspect]
     Active Substance: SODIUM CHLORIDE
     Indication: Medication dilution
     Route: 041
     Dates: start: 20211123, end: 20211123
  4. LORNOXICAM [Suspect]
     Active Substance: LORNOXICAM
     Indication: Analgesic therapy
     Route: 041
     Dates: start: 20211123, end: 20211123

REACTIONS (3)
  - Erythema [Recovered/Resolved]
  - Rash [Recovered/Resolved]
  - Pruritus [Recovered/Resolved]

NARRATIVE: CASE EVENT DATE: 20211123
